FAERS Safety Report 23909907 (Version 4)
Quarter: 2024Q4

REPORT INFORMATION
  Report Type: Spontaneous
  Country: IT (occurrence: IT)
  Receive Date: 20240528
  Receipt Date: 20241007
  Transmission Date: 20250115
  Serious: No
  Sender: ROCHE
  Company Number: IT-ROCHE-3518629

PATIENT
  Age: 65 Year
  Sex: Male
  Weight: 70.0 kg

DRUGS (28)
  1. OBINUTUZUMAB [Suspect]
     Active Substance: OBINUTUZUMAB
     Indication: Diffuse large B-cell lymphoma
     Route: 042
     Dates: start: 20220829, end: 20220929
  2. OBINUTUZUMAB [Suspect]
     Active Substance: OBINUTUZUMAB
     Route: 042
     Dates: start: 20221020, end: 20230105
  3. OBINUTUZUMAB [Suspect]
     Active Substance: OBINUTUZUMAB
     Route: 042
  4. OBINUTUZUMAB [Suspect]
     Active Substance: OBINUTUZUMAB
     Route: 042
  5. BENDAMUSTINE [Suspect]
     Active Substance: BENDAMUSTINE
     Indication: Diffuse large B-cell lymphoma
     Route: 065
     Dates: start: 20220829, end: 20220926
  6. BENDAMUSTINE [Suspect]
     Active Substance: BENDAMUSTINE
     Route: 065
     Dates: start: 20240212, end: 20240304
  7. BENDAMUSTINE [Suspect]
     Active Substance: BENDAMUSTINE
     Route: 065
  8. BENDAMUSTINE [Suspect]
     Active Substance: BENDAMUSTINE
     Route: 065
  9. CYCLOPHOSPHAMIDE [Suspect]
     Active Substance: CYCLOPHOSPHAMIDE
     Indication: Diffuse large B-cell lymphoma
     Route: 065
     Dates: start: 20221020, end: 20230105
  10. CYCLOPHOSPHAMIDE [Suspect]
     Active Substance: CYCLOPHOSPHAMIDE
     Route: 065
     Dates: start: 20230920
  11. CYCLOPHOSPHAMIDE [Suspect]
     Active Substance: CYCLOPHOSPHAMIDE
     Route: 065
  12. VINCRISTINE [Suspect]
     Active Substance: VINCRISTINE
     Indication: Diffuse large B-cell lymphoma
     Route: 065
     Dates: start: 20221020, end: 20230105
  13. VINCRISTINE [Suspect]
     Active Substance: VINCRISTINE
     Route: 065
  14. DOXORUBICIN [Suspect]
     Active Substance: DOXORUBICIN
     Indication: Diffuse large B-cell lymphoma
     Route: 065
     Dates: start: 20221020, end: 20230105
  15. DOXORUBICIN [Suspect]
     Active Substance: DOXORUBICIN
     Route: 065
  16. PREDNISONE [Suspect]
     Active Substance: PREDNISONE
     Indication: Diffuse large B-cell lymphoma
     Route: 065
     Dates: start: 20221020, end: 20230105
  17. PREDNISONE [Suspect]
     Active Substance: PREDNISONE
     Route: 065
     Dates: start: 20230504, end: 20231030
  18. RITUXIMAB [Suspect]
     Active Substance: RITUXIMAB
     Indication: Diffuse large B-cell lymphoma
     Route: 065
     Dates: start: 20230504, end: 20230830
  19. RITUXIMAB [Suspect]
     Active Substance: RITUXIMAB
     Route: 065
     Dates: start: 20240212, end: 20240304
  20. RITUXIMAB [Suspect]
     Active Substance: RITUXIMAB
     Route: 065
  21. GEMCITABINE [Suspect]
     Active Substance: GEMCITABINE
     Indication: Diffuse large B-cell lymphoma
     Route: 065
     Dates: start: 20230504, end: 20231030
  22. CISPLATIN [Suspect]
     Active Substance: CISPLATIN
     Indication: Diffuse large B-cell lymphoma
     Route: 065
     Dates: start: 20230504, end: 20230830
  23. YESCARTA [Suspect]
     Active Substance: AXICABTAGENE CILOLEUCEL
     Indication: Diffuse large B-cell lymphoma
     Route: 065
     Dates: start: 20230920, end: 20230920
  24. FLUDARABINE [Suspect]
     Active Substance: FLUDARABINE PHOSPHATE
     Indication: Diffuse large B-cell lymphoma
     Route: 065
     Dates: start: 20230920
  25. POLIVY [Suspect]
     Active Substance: POLATUZUMAB VEDOTIN-PIIQ
     Indication: Diffuse large B-cell lymphoma
     Route: 065
     Dates: start: 20240212, end: 20240304
  26. POLIVY [Suspect]
     Active Substance: POLATUZUMAB VEDOTIN-PIIQ
     Route: 065
  27. ACYCLOVIR [Concomitant]
     Active Substance: ACYCLOVIR
  28. FEBUXOSTAT [Concomitant]
     Active Substance: FEBUXOSTAT

REACTIONS (10)
  - Disease progression [Unknown]
  - Therapy non-responder [Unknown]
  - Aspartate aminotransferase increased [Unknown]
  - Blood lactate dehydrogenase increased [Unknown]
  - Red blood cell count decreased [Unknown]
  - Haemoglobin decreased [Unknown]
  - Haematocrit decreased [Unknown]
  - Platelet count decreased [Unknown]
  - Lymphocyte count decreased [Unknown]
  - Pyrexia [Unknown]

NARRATIVE: CASE EVENT DATE: 20221017
